FAERS Safety Report 14496884 (Version 1)
Quarter: 2018Q1

REPORT INFORMATION
  Report Type: Spontaneous
  Country: US (occurrence: US)
  Receive Date: 20180207
  Receipt Date: 20180207
  Transmission Date: 20180509
  Serious: Yes (Life-Threatening, Other)
  Sender: FDA-Public Use
  Company Number: None

PATIENT
  Age: 49 Year
  Sex: Male
  Weight: 104.33 kg

DRUGS (8)
  1. IRON [Concomitant]
     Active Substance: IRON
  2. CARISPRODOL [Concomitant]
     Active Substance: CARISOPRODOL
  3. BIOTIN [Concomitant]
     Active Substance: BIOTIN
  4. B2 [Concomitant]
  5. CALCIUM [Concomitant]
     Active Substance: CALCIUM
  6. TAMIFLU [Suspect]
     Active Substance: OSELTAMIVIR PHOSPHATE
     Indication: INFLUENZA
     Dosage: 75MG 2DOSES BID ORAL
     Route: 048
     Dates: start: 20171103, end: 20171104
  7. B1 [Concomitant]
  8. TEMAZEPAM. [Concomitant]
     Active Substance: TEMAZEPAM

REACTIONS (11)
  - Delirium [None]
  - Hallucination, auditory [None]
  - Delusion [None]
  - Disorientation [None]
  - Agitation [None]
  - Hallucination, visual [None]
  - Anxiety [None]
  - Confusional state [None]
  - Legal problem [None]
  - Altered state of consciousness [None]
  - Road traffic accident [None]

NARRATIVE: CASE EVENT DATE: 20171103
